FAERS Safety Report 9915070 (Version 1)
Quarter: 2014Q1

REPORT INFORMATION
  Report Type: Report from Study
  Country: US (occurrence: US)
  Receive Date: 20140220
  Receipt Date: 20140220
  Transmission Date: 20141002
  Serious: Yes (Hospitalization, Other)
  Sender: FDA-Public Use
  Company Number: US-ABBVIE-14P-163-1201585-00

PATIENT
  Age: 25 Year
  Sex: Female
  Weight: 61.29 kg

DRUGS (6)
  1. HUMIRA [Suspect]
     Indication: CROHN^S DISEASE
     Dates: start: 2012, end: 2012
  2. HUMIRA [Suspect]
     Dosage: TWO WEEKS AFTER INITIAL DOSE
     Dates: start: 2012, end: 2012
  3. HUMIRA [Suspect]
     Dates: start: 2012
  4. 6-MP [Concomitant]
     Indication: CROHN^S DISEASE
  5. PROTONIX [Concomitant]
     Indication: CROHN^S DISEASE
  6. PHENERGAN [Concomitant]
     Indication: CROHN^S DISEASE

REACTIONS (5)
  - Abdominal adhesions [Recovered/Resolved]
  - Muscle disorder [Recovered/Resolved]
  - Crohn^s disease [Recovered/Resolved]
  - Abdominal pain [Recovering/Resolving]
  - Injection site haemorrhage [Recovered/Resolved]
